FAERS Safety Report 20729349 (Version 1)
Quarter: 2022Q2

REPORT INFORMATION
  Report Type: Report from Study
  Country: EG (occurrence: EG)
  Receive Date: 20220420
  Receipt Date: 20220420
  Transmission Date: 20220720
  Serious: Yes (Other)
  Sender: FDA-Public Use
  Company Number: EG-NOVARTISPH-NVSC2022EG085114

PATIENT
  Age: 38 Year
  Sex: Female

DRUGS (3)
  1. GILENYA [Suspect]
     Active Substance: FINGOLIMOD HYDROCHLORIDE
     Indication: Multiple sclerosis
     Dosage: 0.5 MG, QD
     Route: 048
     Dates: start: 20211207
  2. OMEGA 3 [Concomitant]
     Active Substance: CAPSAICIN
     Indication: Multiple sclerosis
     Dosage: 1 DOSAGE FORM, QD
     Route: 065
     Dates: start: 2021
  3. GAPTIN [Concomitant]
     Indication: Limb discomfort
     Dosage: 1 DOSAGE FORM, BID
     Route: 065
     Dates: start: 2021

REACTIONS (14)
  - Monocytosis [Unknown]
  - Increased appetite [Recovering/Resolving]
  - Skin exfoliation [Recovering/Resolving]
  - Dry skin [Recovering/Resolving]
  - Contusion [Recovered/Resolved]
  - Arthralgia [Recovered/Resolved]
  - Skin discolouration [Recovered/Resolved]
  - Lymphopenia [Unknown]
  - Weight decreased [Recovering/Resolving]
  - Disability [Recovering/Resolving]
  - Musculoskeletal disorder [Recovered/Resolved]
  - Hypomenorrhoea [Not Recovered/Not Resolved]
  - Hypoaesthesia [Not Recovered/Not Resolved]
  - Insurance issue [Unknown]

NARRATIVE: CASE EVENT DATE: 20211201
